FAERS Safety Report 21191338 (Version 2)
Quarter: 2022Q4

REPORT INFORMATION
  Report Type: Spontaneous
  Country: US (occurrence: US)
  Receive Date: 20220809
  Receipt Date: 20221014
  Transmission Date: 20230112
  Serious: No
  Sender: FDA-Public Use
  Company Number: US-PFIZER INC-PV202200037524

PATIENT
  Age: 57 Year
  Sex: Female

DRUGS (2)
  1. IBRANCE [Suspect]
     Active Substance: PALBOCICLIB
     Dosage: UNK
     Dates: start: 20220730
  2. OMEPRAZOLE [Concomitant]
     Active Substance: OMEPRAZOLE
     Dosage: UNK

REACTIONS (10)
  - Dizziness [Recovered/Resolved]
  - Muscle spasms [Unknown]
  - Middle insomnia [Unknown]
  - Fatigue [Unknown]
  - Dry mouth [Unknown]
  - Oropharyngeal pain [Unknown]
  - Productive cough [Unknown]
  - Oesophageal pain [Unknown]
  - Nausea [Unknown]
  - Dizziness postural [Unknown]

NARRATIVE: CASE EVENT DATE: 20220101
